FAERS Safety Report 4688603-0 (Version None)
Quarter: 2005Q2

REPORT INFORMATION
  Report Type: 
  Country: None (occurrence: None)
  Receive Date: 20050609
  Receipt Date: 20050609
  Transmission Date: 20051028
  Serious: Yes (Hospitalization)
  Sender: FDA-Public Use
  Company Number: None

PATIENT
  Age: 44 Year
  Sex: Female
  Weight: 91 kg

DRUGS (1)
  1. DILANTIN [Suspect]
     Indication: CONVULSION
     Dosage: 100 MG PO QID
     Route: 048
     Dates: start: 20050303

REACTIONS (4)
  - ANTICONVULSANT TOXICITY [None]
  - COORDINATION ABNORMAL [None]
  - DYSARTHRIA [None]
  - HEADACHE [None]
